FAERS Safety Report 7548943-4 (Version None)
Quarter: 2011Q2

REPORT INFORMATION
  Report Type: 
  Country: None (occurrence: None)
  Receive Date: 20110615
  Receipt Date: 20110607
  Transmission Date: 20111010
  Serious: Yes (Other)
  Sender: FDA-Public Use
  Company Number: BR-SANOFI-AVENTIS-2011SA029687

PATIENT
  Sex: Male

DRUGS (5)
  1. LANTUS [Suspect]
     Indication: TYPE 1 DIABETES MELLITUS
     Route: 058
     Dates: start: 20050101
  2. AUTOPEN 24 [Suspect]
  3. LEVOTHYROXINE SODIUM [Concomitant]
     Indication: THYROID DISORDER
     Route: 048
     Dates: start: 20030101
  4. NOVORAPID [Concomitant]
     Indication: TYPE 1 DIABETES MELLITUS
     Dosage: GIVEN ACCORDING TO THE BLOOD GLYCEMIA
     Route: 058
     Dates: start: 20030101
  5. LANTUS [Suspect]
     Route: 058

REACTIONS (3)
  - HYPOGLYCAEMIA [None]
  - CONVULSION [None]
  - WRONG TECHNIQUE IN DRUG USAGE PROCESS [None]
